FAERS Safety Report 8249700-6 (Version None)
Quarter: 2012Q2

REPORT INFORMATION
  Report Type: 
  Country: None (occurrence: None)
  Receive Date: 20120402
  Receipt Date: 20120322
  Transmission Date: 20120825
  Serious: Yes (Life-Threatening, Hospitalization)
  Sender: FDA-Public Use
  Company Number: DE-VERTEX PHARMACEUTICALS INC.-000000000000000234

PATIENT
  Sex: Female

DRUGS (5)
  1. PEGASYS [Concomitant]
     Indication: HEPATITIS C
     Route: 058
     Dates: start: 20110601, end: 20120213
  2. INCIVO (TELAPREVIR) [Suspect]
     Indication: HEPATITIS C
     Dosage: DOSAGE FORM: TABLET
     Route: 048
     Dates: start: 20111216, end: 20120215
  3. LEVOTHYROXINE SODIUM [Concomitant]
     Indication: AUTOIMMUNE THYROIDITIS
     Route: 048
  4. COPEGUS [Concomitant]
     Indication: HEPATITIS C
     Route: 048
     Dates: start: 20110601, end: 20111201
  5. COPEGUS [Concomitant]
     Route: 048
     Dates: end: 20120201

REACTIONS (11)
  - ANAEMIA [None]
  - DECREASED APPETITE [None]
  - THROMBOCYTOPENIA [None]
  - FALL [None]
  - RASH [None]
  - OEDEMA PERIPHERAL [None]
  - CYSTITIS [None]
  - PYREXIA [None]
  - GENERAL PHYSICAL HEALTH DETERIORATION [None]
  - AGRANULOCYTOSIS [None]
  - HYPOKALAEMIA [None]
